FAERS Safety Report 9205278 (Version 5)
Quarter: 2014Q1

REPORT INFORMATION
  Report Type: Report from Study
  Country: DE (occurrence: DE)
  Receive Date: 20130402
  Receipt Date: 20140121
  Transmission Date: 20141002
  Serious: Yes (Death, Hospitalization)
  Sender: FDA-Public Use
  Company Number: DE-UCBSA-071463

PATIENT
  Age: 8 Month
  Sex: Female
  Weight: 7.4 kg

DRUGS (12)
  1. KEPPRA [Suspect]
     Indication: EPILEPSY
     Route: 048
     Dates: start: 20120510, end: 20121025
  2. KEPPRA [Suspect]
     Indication: EPILEPSY
     Route: 048
     Dates: start: 20121026, end: 20121026
  3. KEPPRA [Suspect]
     Indication: EPILEPSY
     Route: 048
     Dates: start: 20121027, end: 20121113
  4. FERROSANOL [Concomitant]
     Indication: IRON DEFICIENCY ANAEMIA
     Dosage: DOSE PER INTAKE: 4
     Dates: start: 20121015, end: 201212
  5. ORFIRIL [Concomitant]
     Indication: EPILEPSY
     Route: 048
  6. SULTANOL [Concomitant]
     Indication: BRONCHITIS
     Dosage: 0,15 ML ROTE: INHALATION
     Dates: start: 20121015, end: 201210
  7. SULTANOL [Concomitant]
     Indication: BRONCHITIS
     Dosage: DOSE PER INTAKE: 3
     Dates: start: 20121017, end: 20121107
  8. PARACETAMOL [Concomitant]
     Indication: PYREXIA
     Dates: start: 20121015, end: 20121017
  9. NUROFEN [Concomitant]
     Indication: PYREXIA
     Dates: start: 20121015, end: 20121107
  10. ATROVENT [Concomitant]
     Indication: BRONCHITIS
     Dosage: DOSE PER INTAKE: 6
     Dates: start: 20121017, end: 20121107
  11. L-THYROXIN [Concomitant]
     Indication: THYROID FUNCTION TEST ABNORMAL
     Dates: start: 20121016, end: 20130107
  12. D-FLUORETTE [Concomitant]
     Indication: IRON DEFICIENCY ANAEMIA
     Dates: start: 201205, end: 20130107

REACTIONS (3)
  - Respiratory disorder [Fatal]
  - Bronchitis [Recovered/Resolved]
  - Pneumonia viral [Recovered/Resolved]
